FAERS Safety Report 17629578 (Version 1)
Quarter: 2020Q2

REPORT INFORMATION
  Report Type: Spontaneous
  Country: US (occurrence: US)
  Receive Date: 20200406
  Receipt Date: 20200406
  Transmission Date: 20200713
  Serious: No
  Sender: FDA-Public Use
  Company Number: US-PFIZER INC-2020139412

PATIENT
  Age: 76 Year
  Sex: Female
  Weight: 42.18 kg

DRUGS (2)
  1. XANAX [Suspect]
     Active Substance: ALPRAZOLAM
     Dosage: 0.5 MG, 3X/DAY AS NEEDED
  2. XANAX [Suspect]
     Active Substance: ALPRAZOLAM
     Indication: MYASTHENIA GRAVIS
     Dosage: 1 MG, UNK

REACTIONS (5)
  - Therapeutic response unexpected [Unknown]
  - Product use in unapproved indication [Unknown]
  - Pre-existing condition improved [Unknown]
  - Off label use [Unknown]
  - Contraindicated product administered [Unknown]
